FAERS Safety Report 21123739 (Version 2)
Quarter: 2022Q3

REPORT INFORMATION
  Report Type: Report from Study
  Country: US (occurrence: US)
  Receive Date: 20220725
  Receipt Date: 20220729
  Transmission Date: 20221026
  Serious: Yes (Other)
  Sender: FDA-Public Use
  Company Number: US-GILEAD-2022-0590140

PATIENT
  Sex: Female

DRUGS (20)
  1. AZTREONAM LYSINE [Suspect]
     Active Substance: AZTREONAM LYSINE
     Indication: Cystic fibrosis
     Dosage: 75 MG, TID, CONTINUOUSLY
     Route: 055
     Dates: start: 20220714
  2. AZTREONAM LYSINE [Suspect]
     Active Substance: AZTREONAM LYSINE
     Dosage: 75 MG, TID, EVERY OTHER MONTH
     Route: 055
  3. HUMALOG [Concomitant]
     Active Substance: INSULIN LISPRO
  4. BASAGLAR [Concomitant]
     Active Substance: INSULIN GLARGINE
  5. PREVYMIS [Concomitant]
     Active Substance: LETERMOVIR
  6. CREON [Concomitant]
     Active Substance: PANCRELIPASE AMYLASE\PANCRELIPASE LIPASE\PANCRELIPASE PROTEASE
  7. TACROLIMUS [Concomitant]
     Active Substance: TACROLIMUS
  8. ZINC [Concomitant]
     Active Substance: ZINC
  9. LEXAPRO [Concomitant]
     Active Substance: ESCITALOPRAM OXALATE
  10. PREDNISONE [Concomitant]
     Active Substance: PREDNISONE
  11. VITAMINS NOS [Concomitant]
     Active Substance: VITAMINS
  12. VITAMIN C [Concomitant]
     Active Substance: ASCORBIC ACID
  13. MINERALS\VITAMINS [Concomitant]
     Active Substance: MINERALS\VITAMINS
  14. ITRACONAZOLE [Concomitant]
     Active Substance: ITRACONAZOLE
  15. MYCOPHENOLATE MOFETIL [Concomitant]
     Active Substance: MYCOPHENOLATE MOFETIL
  16. AZITHROMYCIN [Concomitant]
     Active Substance: AZITHROMYCIN
  17. BUSPIRONE [Concomitant]
     Active Substance: BUSPIRONE HYDROCHLORIDE
  18. BACTRIM [Concomitant]
     Active Substance: SULFAMETHOXAZOLE\TRIMETHOPRIM
  19. VITAMIN D NOS [Concomitant]
     Active Substance: VITAMIN D NOS
  20. AMLODIPINE [Concomitant]
     Active Substance: AMLODIPINE BESYLATE

REACTIONS (7)
  - Cystic fibrosis [Unknown]
  - Pneumonia [Unknown]
  - Drug hypersensitivity [Not Recovered/Not Resolved]
  - Depression [Not Recovered/Not Resolved]
  - Sinusitis [Unknown]
  - COVID-19 [Unknown]
  - Off label use [Unknown]
